FAERS Safety Report 5448550-3 (Version None)
Quarter: 2007Q3

REPORT INFORMATION
  Report Type: 
  Country: None (occurrence: None)
  Receive Date: 20070905
  Receipt Date: 20070827
  Transmission Date: 20080115
  Serious: Yes (Hospitalization)
  Sender: FDA-Public Use
  Company Number: E2020-01554-SPO-US

PATIENT
  Age: 81 Year
  Sex: Male
  Weight: 84 kg

DRUGS (1)
  1. ARICEPT [Suspect]
     Indication: AMNESIA
     Dosage: 10 MG, 1 IN 1 D, ORAL
     Route: 048
     Dates: start: 20061130, end: 20061212

REACTIONS (3)
  - ANAEMIA [None]
  - MALLORY-WEISS SYNDROME [None]
  - SYNCOPE [None]
